FAERS Safety Report 4930053-3 (Version None)
Quarter: 2006Q1

REPORT INFORMATION
  Report Type: 
  Country: None (occurrence: None)
  Receive Date: 20060228
  Receipt Date: 20060202
  Transmission Date: 20060701
  Serious: Yes (Other)
  Sender: FDA-Public Use
  Company Number: GB200602000582

PATIENT
  Age: 9 Year
  Sex: Male

DRUGS (9)
  1. STRATTERA [Suspect]
     Indication: ATTENTION DEFICIT/HYPERACTIVITY DISORDER
     Dosage: 10 MG; 8 MG; 25 MG; 40 MG
     Dates: end: 20060202
  2. STRATTERA [Suspect]
     Indication: ATTENTION DEFICIT/HYPERACTIVITY DISORDER
     Dosage: 10 MG; 8 MG; 25 MG; 40 MG
     Dates: start: 20051201
  3. STRATTERA [Suspect]
     Indication: ATTENTION DEFICIT/HYPERACTIVITY DISORDER
     Dosage: 10 MG; 8 MG; 25 MG; 40 MG
  4. STRATTERA [Suspect]
     Indication: ATTENTION DEFICIT/HYPERACTIVITY DISORDER
     Dosage: 10 MG; 8 MG; 25 MG; 40 MG
  5. PIZOTIFEN (PIZOTIFEN) [Concomitant]
  6. BRICANYL (TERBUTALINE) [Concomitant]
  7. MULTIBIONTA (ASCORBIC ACID, CALCIUM PANTOTHENATE, CYANOCOBALAMIN, NICO [Concomitant]
  8. OMEGA 3 (FISH OIL) [Concomitant]
  9. ZAIFIRKULAST (ZAFIRKULAST) [Concomitant]

REACTIONS (13)
  - AGITATION [None]
  - ANXIETY [None]
  - CHILLS [None]
  - DIFFICULTY IN WALKING [None]
  - FATIGUE [None]
  - FEELING COLD [None]
  - LIVER TENDERNESS [None]
  - LYMPHADENOPATHY [None]
  - MUSCLE SPASMS [None]
  - MUSCULOSKELETAL STIFFNESS [None]
  - NAUSEA [None]
  - SLEEP DISORDER [None]
  - SWELLING FACE [None]
